FAERS Safety Report 14766099 (Version 1)
Quarter: 2018Q2

REPORT INFORMATION
  Report Type: Spontaneous
  Country: US (occurrence: US)
  Receive Date: 20180416
  Receipt Date: 20180416
  Transmission Date: 20180711
  Serious: No
  Sender: FDA-Public Use
  Company Number: US-ASTELLAS-2017US013414

PATIENT
  Age: 65 Year
  Sex: Male

DRUGS (2)
  1. PROGRAF [Suspect]
     Active Substance: TACROLIMUS\TACROLIMUS ANHYDROUS
     Indication: PRODUCT USED FOR UNKNOWN INDICATION
     Dosage: 0.5 MG/ML, UNKNOWN FREQ. (USED 5MG X 24 CAPSULES TO MAKE A 0.5MG/ML SUSPENSION)
     Route: 065
     Dates: start: 20170310
  2. PROGRAF [Suspect]
     Active Substance: TACROLIMUS\TACROLIMUS ANHYDROUS
     Route: 065
     Dates: start: 20170404

REACTIONS (3)
  - Drug level fluctuating [Unknown]
  - Immunosuppressant drug level increased [Unknown]
  - Wrong technique in product usage process [Unknown]
